FAERS Safety Report 18050316 (Version 2)
Quarter: 2020Q3

REPORT INFORMATION
  Report Type: Report from Study
  Country: CA (occurrence: CA)
  Receive Date: 20200721
  Receipt Date: 20200930
  Transmission Date: 20201103
  Serious: Yes (Other)
  Sender: FDA-Public Use
  Company Number: CA-ELI_LILLY_AND_COMPANY-CA202007006845

PATIENT
  Age: 49 Year
  Sex: Female

DRUGS (2)
  1. EMGALITY [Suspect]
     Active Substance: GALCANEZUMAB-GNLM
     Indication: PRODUCT USED FOR UNKNOWN INDICATION
     Dosage: 140 MG, MONTHLY (1/M)
     Route: 058
     Dates: end: 202008
  2. EMGALITY [Suspect]
     Active Substance: GALCANEZUMAB-GNLM
     Indication: PRODUCT USED FOR UNKNOWN INDICATION
     Dosage: 140 MG, MONTHLY (1/M)
     Route: 058
     Dates: end: 202008

REACTIONS (5)
  - Intestinal obstruction [Unknown]
  - Constipation [Unknown]
  - Injection site bruising [Recovered/Resolved]
  - Abdominal pain [Unknown]
  - Incorrect dose administered [Unknown]

NARRATIVE: CASE EVENT DATE: 20200601
